FAERS Safety Report 9928632 (Version 1)
Quarter: 2014Q1

REPORT INFORMATION
  Report Type: Spontaneous
  Country: CL (occurrence: CL)
  Receive Date: 20140227
  Receipt Date: 20140227
  Transmission Date: 20141002
  Serious: Yes (Other)
  Sender: FDA-Public Use
  Company Number: CL-PFIZER INC-2014054924

PATIENT
  Age: 84 Year
  Sex: Female

DRUGS (7)
  1. XALATAN [Suspect]
     Indication: GLAUCOMA
     Dosage: 1 GTT, 1X/DAY
     Route: 047
     Dates: start: 1999, end: 2013
  2. NORVASC [Concomitant]
     Dosage: UNK
     Dates: end: 2011
  3. CADUET [Concomitant]
     Dosage: 5 -10 MG, 1X/DAY
     Dates: start: 2012
  4. TRUSOPT [Concomitant]
     Dosage: 1 GTT, 1X/DAY (1 DROP FOR EACH EYE 1X/DAY)
  5. APROVEL [Concomitant]
     Dosage: 150 MG, 1X/DAY
  6. DILATREND [Concomitant]
     Dosage: 25 MG, 2X/DAY
  7. ZOMEL [Concomitant]

REACTIONS (5)
  - Cataract [Unknown]
  - Glaucoma [Not Recovered/Not Resolved]
  - Intraocular pressure increased [Not Recovered/Not Resolved]
  - Sleep disorder [Not Recovered/Not Resolved]
  - Syncope [Not Recovered/Not Resolved]
